FAERS Safety Report 13982347 (Version 1)
Quarter: 2017Q3

REPORT INFORMATION
  Report Type: Report from Study
  Country: CN (occurrence: CN)
  Receive Date: 20170918
  Receipt Date: 20170918
  Transmission Date: 20171128
  Serious: Yes (Other)
  Sender: FDA-Public Use
  Company Number: CN-ASTELLAS-2017US037388

PATIENT
  Age: 3 Year
  Sex: Male

DRUGS (3)
  1. PREDNISONE. [Concomitant]
     Active Substance: PREDNISONE
     Indication: NEPHROTIC SYNDROME
     Dosage: 2 MG/KG, ONCE DAILY (BY 3 TIMES)
     Route: 048
  2. TACROLIMUS. [Suspect]
     Active Substance: TACROLIMUS
     Indication: NEPHROTIC SYNDROME
     Dosage: 0.1-0.15 MG/KG, EVERY 12 HOURS (TAKEN ON AN EMPTY STOMACH)
     Route: 048
  3. TACROLIMUS. [Suspect]
     Active Substance: TACROLIMUS
     Dosage: 0.15 MG/KG, ONCE DAILY
     Route: 065

REACTIONS (3)
  - Focal segmental glomerulosclerosis [Unknown]
  - Acute kidney injury [Recovered/Resolved]
  - Off label use [Unknown]
